FAERS Safety Report 16378987 (Version 6)
Quarter: 2023Q1

REPORT INFORMATION
  Report Type: Spontaneous
  Country: JP (occurrence: JP)
  Receive Date: 20190531
  Receipt Date: 20230210
  Transmission Date: 20230418
  Serious: Yes (Other)
  Sender: FDA-Public Use
  Company Number: JP-JNJFOC-20190541231

PATIENT
  Age: 33 Year
  Sex: Male

DRUGS (5)
  1. REMICADE [Suspect]
     Active Substance: INFLIXIMAB
     Indication: Crohn^s disease
     Dosage: 414 MILLIGRAM, QD
     Route: 041
     Dates: start: 20140115
  2. REMICADE [Suspect]
     Active Substance: INFLIXIMAB
     Dosage: 885 MILLIGRAM, QD
     Route: 041
     Dates: start: 20170913
  3. REMICADE [Suspect]
     Active Substance: INFLIXIMAB
     Dosage: 885 MILLIGRAM, QD
     Route: 041
     Dates: start: 20180307, end: 20180307
  4. PENTASA [Concomitant]
     Active Substance: MESALAMINE
     Dosage: 300 MILLIGRAM, QD
     Route: 048
  5. BIOFERMIN [BACILLUS SUBTILIS;ENTEROCOCCUS FAECALIS;LACTOBACILLUS ACIDO [Concomitant]
     Dosage: 2 GRAM, QD
     Route: 048

REACTIONS (1)
  - IgA nephropathy [Recovering/Resolving]

NARRATIVE: CASE EVENT DATE: 20180307
